FAERS Safety Report 5208881-9 (Version None)
Quarter: 2007Q1

REPORT INFORMATION
  Report Type: 
  Country: None (occurrence: None)
  Receive Date: 20070116
  Receipt Date: 20070112
  Transmission Date: 20070707
  Serious: Yes (Death)
  Sender: FDA-Public Use
  Company Number: US-ELI_LILLY_AND_COMPANY-US200701002619

PATIENT
  Sex: Female

DRUGS (2)
  1. ZYPREXA [Suspect]
     Indication: DEMENTIA
  2. RISPERIDONE [Concomitant]

REACTIONS (5)
  - CRYING [None]
  - DEATH [None]
  - SKIN OEDEMA [None]
  - STARVATION [None]
  - YELLOW SKIN [None]
